FAERS Safety Report 9867903 (Version 1)
Quarter: 2014Q1

REPORT INFORMATION
  Report Type: Report from Study
  Country: TN (occurrence: TN)
  Receive Date: 20140204
  Receipt Date: 20140204
  Transmission Date: 20141002
  Serious: Yes (Hospitalization)
  Sender: FDA-Public Use
  Company Number: TN-SANOFI-AVENTIS-2012SA077409

PATIENT
  Age: 29 Year
  Sex: Female
  Weight: 75 kg

DRUGS (3)
  1. TERIFLUNOMIDE [Suspect]
     Indication: MULTIPLE SCLEROSIS RELAPSE
     Route: 048
     Dates: start: 20120831
  2. INTERFERON BETA [Suspect]
     Indication: MULTIPLE SCLEROSIS RELAPSE
     Route: 065
  3. SOLUMEDROL [Concomitant]
     Dosage: DOSE:1000 MILLIGRAM(S)/LITRE
     Route: 042
     Dates: start: 20121008, end: 20121012

REACTIONS (1)
  - Chest pain [Recovered/Resolved]
